FAERS Safety Report 8789766 (Version 1)
Quarter: 2012Q4

REPORT INFORMATION
  Report Type: Spontaneous
  Country: US (occurrence: None)
  Receive Date: 20120911
  Receipt Date: 20120911
  Transmission Date: 20130627
  Serious: No
  Sender: FDA-Public Use
  Company Number: None

PATIENT
  Age: 64 Year
  Sex: Female

DRUGS (1)
  1. ENBREL [Suspect]
     Indication: RA
     Dates: start: 20120814, end: 20120905

REACTIONS (9)
  - Palpitations [None]
  - Nausea [None]
  - Decreased appetite [None]
  - Food aversion [None]
  - Weight decreased [None]
  - Diverticulitis [None]
  - Personality change [None]
  - Mental disorder [None]
  - Nervousness [None]
